FAERS Safety Report 5441821-6 (Version None)
Quarter: 2007Q3

REPORT INFORMATION
  Report Type: 
  Country: None (occurrence: None)
  Receive Date: 20070830
  Receipt Date: 20070830
  Transmission Date: 20080115
  Serious: No
  Sender: FDA-Public Use
  Company Number: None

PATIENT
  Age: 58 Year
  Sex: Male
  Weight: 93.5 kg

DRUGS (2)
  1. GADOPENTETATE UNKNOWN UNKNOWN [Suspect]
     Indication: NUCLEAR MAGNETIC RESONANCE IMAGING
     Dosage: 20ML ONE TIME ONLY IV
     Route: 042
     Dates: start: 20070328, end: 20070328
  2. GADOPENTETATE UNKNOWN UNKNOWN [Suspect]
     Indication: NUCLEAR MAGNETIC RESONANCE IMAGING
     Dosage: 40ML ONE TIME ONLY IV
     Route: 042
     Dates: start: 20061016, end: 20061016

REACTIONS (1)
  - NEPHROGENIC SYSTEMIC FIBROSIS [None]
